FAERS Safety Report 18510548 (Version 1)
Quarter: 2020Q4

REPORT INFORMATION
  Report Type: Spontaneous
  Country: US (occurrence: US)
  Receive Date: 20201116
  Receipt Date: 20201116
  Transmission Date: 20210114
  Serious: Yes (Other)
  Sender: FDA-Public Use
  Company Number: None

PATIENT
  Age: 49 Year
  Sex: Female
  Weight: 94.5 kg

DRUGS (5)
  1. STELARA [Suspect]
     Active Substance: USTEKINUMAB
     Indication: HIDRADENITIS
     Dosage: ?          OTHER FREQUENCY:EVERY 2 MONTHS;?
     Route: 062
     Dates: start: 20200210, end: 20200603
  2. SPIRONOLACTONE. [Concomitant]
     Active Substance: SPIRONOLACTONE
  3. METFORMIN [Concomitant]
     Active Substance: METFORMIN HYDROCHLORIDE
  4. COLCHICINE. [Concomitant]
     Active Substance: COLCHICINE
  5. ZINC. [Concomitant]
     Active Substance: ZINC

REACTIONS (6)
  - Peripheral swelling [None]
  - Palmar erythema [None]
  - Muscular weakness [None]
  - Electromyogram normal [None]
  - Myositis [None]
  - Myalgia [None]

NARRATIVE: CASE EVENT DATE: 20200605
